FAERS Safety Report 25801723 (Version 1)
Quarter: 2025Q3

REPORT INFORMATION
  Report Type: Spontaneous
  Country: US (occurrence: US)
  Receive Date: 20250915
  Receipt Date: 20250915
  Transmission Date: 20251020
  Serious: No
  Sender: MERCK SHARP & DOHME LLC
  Company Number: US-009507513-2329286

PATIENT
  Sex: Female

DRUGS (2)
  1. KEYTRUDA [Suspect]
     Active Substance: PEMBROLIZUMAB
     Indication: Adrenocortical carcinoma
  2. LENVIMA [Suspect]
     Active Substance: LENVATINIB
     Indication: Adrenocortical carcinoma

REACTIONS (2)
  - Product use in unapproved indication [Unknown]
  - No adverse event [Unknown]
